FAERS Safety Report 8883616 (Version 1)
Quarter: 2012Q4

REPORT INFORMATION
  Report Type: Report from Study
  Country: CA (occurrence: CA)
  Receive Date: 20121102
  Receipt Date: 20121102
  Transmission Date: 20130627
  Serious: Yes (Hospitalization, Other)
  Sender: FDA-Public Use
  Company Number: CA-ABBOTT-12P-028-0999636-00

PATIENT
  Age: 69 None
  Sex: Male
  Weight: 84.44 kg

DRUGS (1)
  1. LUPRON DEPOT [Suspect]
     Indication: PROSTATE CANCER
     Route: 050
     Dates: start: 20101105

REACTIONS (3)
  - Abdominal hernia [Unknown]
  - Post procedural complication [Unknown]
  - Appendicitis [Unknown]
